FAERS Safety Report 23230067 (Version 1)
Quarter: 2023Q4

REPORT INFORMATION
  Report Type: Spontaneous
  Country: US (occurrence: None)
  Receive Date: 20231123
  Receipt Date: 20231123
  Transmission Date: 20240109
  Serious: Yes (Hospitalization)
  Sender: FDA-Public Use
  Company Number: None

PATIENT
  Sex: Female
  Weight: 81.9 kg

DRUGS (2)
  1. CARBOPLATIN [Suspect]
     Active Substance: CARBOPLATIN
     Dates: end: 20230624
  2. TAXOL [Suspect]
     Active Substance: PACLITAXEL
     Dates: end: 20220624

REACTIONS (5)
  - Nausea [None]
  - Vomiting [None]
  - Blood creatinine increased [None]
  - Blood urea increased [None]
  - Hypophagia [None]

NARRATIVE: CASE EVENT DATE: 20230708
